FAERS Safety Report 9219894 (Version 1)
Quarter: 2013Q1

REPORT INFORMATION
  Report Type: Spontaneous
  Country: US (occurrence: None)
  Receive Date: 20120831
  Receipt Date: 20120831
  Transmission Date: 20140127
  Serious: No
  Sender: FDA-Public Use
  Company Number: 1000031246

PATIENT
  Age: 70 Year
  Sex: Male

DRUGS (4)
  1. DALIRESP [Suspect]
     Indication: CHRONIC OBSTRUCTIVE PULMONARY DISEASE
     Route: 048
     Dates: start: 201204, end: 201205
  2. SINEMET (SINEMET) (SINEMET) [Concomitant]
  3. REQUIP (ROPINIROLE HYDROCHLORIDE) (ROPINIROLE HYDROCHLORIDE) [Concomitant]
  4. ALBUTEROL (ALBUTEROL )(ALBUTEROL) [Concomitant]

REACTIONS (1)
  - Diarrhoea [None]
